FAERS Safety Report 7128142-0 (Version None)
Quarter: 2010Q4

REPORT INFORMATION
  Report Type: 
  Country: None (occurrence: None)
  Receive Date: 20101130
  Receipt Date: 20101118
  Transmission Date: 20110411
  Serious: Yes (Other)
  Sender: FDA-Public Use
  Company Number: US-ASTRAZENECA-2010SE55272

PATIENT
  Age: 16 Year
  Sex: Male
  Weight: 81.6 kg

DRUGS (4)
  1. SYMBICORT [Suspect]
     Indication: ASTHMA
     Dosage: 160/4.5 ONE PUFF
     Route: 055
  2. ZOLOFT [Concomitant]
  3. CLARITIN [Concomitant]
  4. MELOXICAM [Concomitant]

REACTIONS (7)
  - ACCIDENTAL OVERDOSE [None]
  - CHEST PAIN [None]
  - DYSPNOEA [None]
  - FEELING JITTERY [None]
  - MUSCLE TWITCHING [None]
  - PALPITATIONS [None]
  - TACHYCARDIA [None]
